FAERS Safety Report 7157084-X (Version None)
Quarter: 2010Q4

REPORT INFORMATION
  Report Type: 
  Country: None (occurrence: None)
  Receive Date: 20101214
  Receipt Date: 20100119
  Transmission Date: 20110411
  Serious: Yes (Hospitalization)
  Sender: FDA-Public Use
  Company Number: US-ASTRAZENECA-2009SE33381

PATIENT
  Age: 62 Year
  Sex: Male
  Weight: 98.9 kg

DRUGS (3)
  1. CRESTOR [Suspect]
     Indication: DYSLIPIDAEMIA
     Route: 048
     Dates: start: 20040525, end: 20091222
  2. ASPIRIN [Concomitant]
     Route: 048
  3. M.V.I. [Concomitant]

REACTIONS (1)
  - PANCREATITIS ACUTE [None]
